FAERS Safety Report 14422717 (Version 3)
Quarter: 2018Q2

REPORT INFORMATION
  Report Type: Report from Study
  Country: US (occurrence: US)
  Receive Date: 20180123
  Receipt Date: 20180521
  Transmission Date: 20180711
  Serious: Yes (Other)
  Sender: FDA-Public Use
  Company Number: US-ROCHE-2054889

PATIENT
  Age: 63 Year
  Sex: Male
  Weight: 102.6 kg

DRUGS (12)
  1. SIMVASTATIN. [Concomitant]
     Active Substance: SIMVASTATIN
     Indication: BLOOD CHOLESTEROL
     Route: 065
     Dates: start: 2003
  2. MOBIC [Concomitant]
     Active Substance: MELOXICAM
     Route: 065
     Dates: start: 2010
  3. FISH OIL [Concomitant]
     Active Substance: FISH OIL
  4. PROTONIX [Concomitant]
     Active Substance: PANTOPRAZOLE SODIUM
     Indication: GASTROOESOPHAGEAL REFLUX DISEASE
     Route: 065
     Dates: start: 2002
  5. METOPROLOL. [Concomitant]
     Active Substance: METOPROLOL
     Route: 065
     Dates: start: 2003
  6. COENZYME Q10 [Concomitant]
     Active Substance: UBIDECARENONE
  7. NIACIN. [Concomitant]
     Active Substance: NIACIN
     Dosage: 1 EVERY MORNING, 2 EVERY NIGHT ;ONGOING: YES
     Route: 065
  8. ASPIRIN. [Concomitant]
     Active Substance: ASPIRIN
     Indication: ANTICOAGULANT THERAPY
     Route: 065
     Dates: start: 2003
  9. ESBRIET [Suspect]
     Active Substance: PIRFENIDONE
     Indication: IDIOPATHIC PULMONARY FIBROSIS
     Route: 048
     Dates: start: 201711, end: 20171218
  10. VITAMIN B12 [Concomitant]
     Active Substance: CYANOCOBALAMIN
     Route: 065
  11. FLOMAX [Concomitant]
     Active Substance: TAMSULOSIN HYDROCHLORIDE
     Route: 065
     Dates: start: 2010
  12. METFORMIN [Concomitant]
     Active Substance: METFORMIN HYDROCHLORIDE
     Indication: DIABETES MELLITUS
     Dosage: TWICE DAILY
     Route: 065
     Dates: start: 2008

REACTIONS (13)
  - Nausea [Recovered/Resolved]
  - Gastric disorder [Recovered/Resolved]
  - Eating disorder [Recovered/Resolved]
  - Dyspnoea [Recovered/Resolved with Sequelae]
  - Sinusitis [Recovering/Resolving]
  - Cough [Unknown]
  - Renal disorder [Not Recovered/Not Resolved]
  - Pulmonary pain [Recovered/Resolved]
  - Malaise [Recovering/Resolving]
  - Nasal discharge discolouration [Recovering/Resolving]
  - Weight decreased [Recovering/Resolving]
  - Epistaxis [Recovering/Resolving]
  - Pyrexia [Recovering/Resolving]

NARRATIVE: CASE EVENT DATE: 201712
